FAERS Safety Report 13982104 (Version 1)
Quarter: 2017Q3

REPORT INFORMATION
  Report Type: Spontaneous
  Country: NL (occurrence: NL)
  Receive Date: 20170918
  Receipt Date: 20170918
  Transmission Date: 20171128
  Serious: Yes (Hospitalization)
  Sender: FDA-Public Use
  Company Number: NL-NOVOPROD-562247

PATIENT
  Age: 62 Year
  Sex: Male

DRUGS (3)
  1. SAFLUTAN [Concomitant]
     Active Substance: TAFLUPROST
     Dosage: UNK (QD)
     Route: 065
  2. NOVOEIGHT [Suspect]
     Active Substance: ANTIHEMOPHILIC FACTOR, HUMAN RECOMBINANT
     Indication: HAEMARTHROSIS
     Dosage: 2000 U
     Route: 058
  3. NOVOEIGHT [Suspect]
     Active Substance: ANTIHEMOPHILIC FACTOR, HUMAN RECOMBINANT
     Indication: FACTOR VIII DEFICIENCY
     Dosage: UNK
     Route: 058

REACTIONS (5)
  - Erythema [Recovered/Resolved]
  - Throat irritation [Recovered/Resolved]
  - Feeling hot [Recovered/Resolved]
  - Hypersensitivity [Recovered/Resolved]
  - Incorrect route of drug administration [Unknown]
